FAERS Safety Report 7724574-8 (Version None)
Quarter: 2011Q3

REPORT INFORMATION
  Report Type: 
  Country: None (occurrence: None)
  Receive Date: 20110901
  Receipt Date: 20110824
  Transmission Date: 20111222
  Serious: Yes (Death, Other)
  Sender: FDA-Public Use
  Company Number: US-BAYER-201041611NA

PATIENT
  Age: 73 Year
  Sex: Female
  Weight: 91 kg

DRUGS (19)
  1. FUROSEMIDE [Concomitant]
     Dosage: 20 MG, QD
     Route: 048
     Dates: start: 20061001
  2. VERAPAMIL [Concomitant]
     Dosage: 240 MG, QD
     Route: 048
  3. TRAZODONE HYDROCHLORIDE [Concomitant]
     Dosage: 50 MG, QD
     Route: 048
  4. PROTAMINE SULFATE [Concomitant]
     Dosage: 260MG
     Route: 042
     Dates: start: 20061117, end: 20061117
  5. TRASYLOL [Suspect]
     Indication: CORONARY ARTERY BYPASS
     Dosage: 100 ML PRIME
     Route: 042
     Dates: start: 20061117, end: 20061117
  6. TRASYLOL [Suspect]
     Indication: MITRAL VALVE REPAIR
     Dosage: 100ML (LOADING DOSE)
  7. LASIX [Concomitant]
     Dosage: 20 MG, PRN
     Route: 048
  8. DOBUTAMINE HCL [Concomitant]
     Dosage: UNK
     Route: 042
     Dates: start: 20061117
  9. HYDRALAZINE HCL [Concomitant]
     Dosage: 20MG
     Route: 042
     Dates: start: 20061117, end: 20061117
  10. PRILOSEC [Concomitant]
     Dosage: UNK UNK, QD
     Route: 048
  11. TIMOPTIC [Concomitant]
     Dosage: 0.5 MG, QD (EYE)
  12. TRASYLOL [Suspect]
     Dosage: 1 ML TEST DOSE
     Dates: start: 20061117, end: 20061117
  13. COREG [Concomitant]
     Dosage: 3.125 MG, BID
     Route: 048
  14. FENTANYL [Concomitant]
     Dosage: 70MCG
     Route: 042
     Dates: start: 20061117, end: 20061117
  15. HEPARIN [Concomitant]
     Dosage: 38,000 UNITS
     Route: 042
     Dates: start: 20061117, end: 20061117
  16. ACETYLSALICYLIC ACID SRT [Concomitant]
     Dosage: 81 MG, QD
     Route: 048
  17. QUINAPRIL HCL [Concomitant]
     Dosage: 20 MG, QD
     Route: 048
  18. DIGOXIN [Concomitant]
     Dosage: UNK UNK, QD
  19. RED BLOOD CELLS [Concomitant]
     Dosage: 4 U, UNK
     Route: 042
     Dates: start: 20061117, end: 20061117

REACTIONS (15)
  - EMOTIONAL DISTRESS [None]
  - ANXIETY [None]
  - UNEVALUABLE EVENT [None]
  - MULTI-ORGAN FAILURE [None]
  - STRESS [None]
  - PAIN [None]
  - DEATH [None]
  - RENAL IMPAIRMENT [None]
  - DEPRESSION [None]
  - RENAL FAILURE [None]
  - INJURY [None]
  - RENAL INJURY [None]
  - DYSPNOEA [None]
  - FEAR [None]
  - CARDIAC DISORDER [None]
